FAERS Safety Report 9229840 (Version 1)
Quarter: 2013Q2

REPORT INFORMATION
  Report Type: Spontaneous
  Country: US (occurrence: US)
  Receive Date: 20130415
  Receipt Date: 20130415
  Transmission Date: 20140414
  Serious: Yes (Other)
  Sender: FDA-Public Use
  Company Number: US-AMGEN-USASP2013025119

PATIENT
  Age: 80 Year
  Sex: Female

DRUGS (5)
  1. PROLIA [Suspect]
     Indication: OSTEOPOROSIS POSTMENOPAUSAL
     Dosage: UNK
  2. IBUPROFEN [Concomitant]
  3. ASPIRIN [Concomitant]
  4. CALCIUM [Concomitant]
  5. VITAMIN D /00107901/ [Concomitant]

REACTIONS (1)
  - Bone loss [Recovering/Resolving]
